FAERS Safety Report 9408310 (Version 1)
Quarter: 2013Q3

REPORT INFORMATION
  Report Type: Spontaneous
  Country: KR (occurrence: KR)
  Receive Date: 20130718
  Receipt Date: 20130718
  Transmission Date: 20140515
  Serious: Yes (Death, Other)
  Sender: FDA-Public Use
  Company Number: PHHY2013KR075472

PATIENT
  Age: 78 Year
  Sex: Female

DRUGS (12)
  1. AMPICILLIN SODIUM+SULBACTAM SODIUM [Suspect]
     Indication: SKIN INFECTION
  2. AMIKACIN [Suspect]
     Dosage: 250 MG, QD
  3. CLARITHROMYCIN [Suspect]
     Dosage: 375 MG, QD
  4. CLARITHROMYCIN [Suspect]
     Dosage: 375 MG, Q12H
  5. CEFOXITIN [Suspect]
     Dosage: 3 G, QD
  6. RIFABUTIN [Suspect]
     Dosage: 150 MG, QD
  7. ASPIRIN [Concomitant]
     Indication: PRIMARY HYPOTHYROIDISM
  8. VALSARTAN [Concomitant]
     Indication: PRIMARY HYPOTHYROIDISM
  9. ISOSORBIDE DINITRATE [Concomitant]
     Indication: PRIMARY HYPOTHYROIDISM
  10. FUROSEMIDE [Concomitant]
     Indication: PRIMARY HYPOTHYROIDISM
  11. LEVOTHYROXINE [Concomitant]
     Indication: PRIMARY HYPOTHYROIDISM
  12. PREDNISOLONE [Concomitant]
     Indication: ADRENAL INSUFFICIENCY
     Dosage: 7.5 MG, UNK

REACTIONS (3)
  - General physical health deterioration [Fatal]
  - Mycobacterium chelonae infection [Unknown]
  - Drug ineffective [Unknown]
